APPROVED DRUG PRODUCT: ZANTAC IN PLASTIC CONTAINER
Active Ingredient: RANITIDINE HYDROCHLORIDE
Strength: EQ 50MG BASE/100ML
Dosage Form/Route: INJECTABLE;INJECTION
Application: N019593 | Product #001
Applicant: PAI HOLDINGS LLC DBA PHARMACEUTICAL ASSOCIATES INC
Approved: Dec 17, 1986 | RLD: No | RS: No | Type: DISCN